FAERS Safety Report 6397787-8 (Version None)
Quarter: 2009Q4

REPORT INFORMATION
  Report Type: 
  Country: None (occurrence: None)
  Receive Date: 20091007
  Receipt Date: 20090922
  Transmission Date: 20100525
  Serious: Yes (Hospitalization, Other)
  Sender: FDA-Public Use
  Company Number: 2009001464

PATIENT
  Age: 72 Year
  Sex: Female
  Weight: 69.4 kg

DRUGS (9)
  1. ERLOTINIB HYDROCHLORIDE [Suspect]
     Indication: NON-SMALL CELL LUNG CANCER
     Dosage: (150 MG,QD),ORAL
     Route: 048
     Dates: start: 20090130
  2. CARBOPLATIN(CARBOPLATIN)(INJECTION INFUSION) [Suspect]
     Indication: NON-SMALL CELL LUNG CANCER
     Dosage: (526 MG,Q3W), INTRAVENOUS
     Route: 042
     Dates: start: 20090422
  3. PACLITAXEL [Suspect]
     Indication: NON-SMALL CELL LUNG CANCER
     Dosage: (350 MG,Q3W), INTRAVENOUS
     Route: 042
     Dates: start: 20090422
  4. VERAPAMIL [Concomitant]
  5. SYNTHROID [Concomitant]
  6. NEXIUM [Concomitant]
  7. AMITRIPTYLINE HYDROCHLORIDE [Concomitant]
  8. M.V.I. [Concomitant]
  9. VITAMIN B12 [Concomitant]

REACTIONS (1)
  - FEBRILE NEUTROPENIA [None]
